FAERS Safety Report 18157595 (Version 1)
Quarter: 2020Q3

REPORT INFORMATION
  Report Type: Spontaneous
  Country: PL (occurrence: PL)
  Receive Date: 20200817
  Receipt Date: 20200817
  Transmission Date: 20201103
  Serious: Yes (Other)
  Sender: FDA-Public Use
  Company Number: PL-TEVA-2020-PL-1813903

PATIENT
  Age: 81 Year
  Sex: Female
  Weight: 80 kg

DRUGS (8)
  1. HYDROXYZINE [Suspect]
     Active Substance: HYDROXYZINE HYDROCHLORIDE
     Indication: DEMENTIA ALZHEIMER^S TYPE
     Dosage: DOSE: 50
     Route: 065
     Dates: start: 20161220, end: 20200102
  2. AMLOPIN [Concomitant]
     Indication: ESSENTIAL HYPERTENSION
     Dosage: 5 MG
  3. DONECEPT [Suspect]
     Active Substance: DONEPEZIL HYDROCHLORIDE
     Indication: DEMENTIA ALZHEIMER^S TYPE
     Dosage: 10 MG
     Route: 048
     Dates: end: 20200102
  4. PROMAZIN [Suspect]
     Active Substance: PROMAZINE
     Indication: DEMENTIA ALZHEIMER^S TYPE
     Dosage: 100 MG
     Route: 065
     Dates: start: 20161220, end: 20200102
  5. TIAPRIDE [Suspect]
     Active Substance: TIAPRIDE
     Indication: DEMENTIA ALZHEIMER^S TYPE
     Dosage: 50 MG
     Route: 065
     Dates: start: 20161220, end: 20200102
  6. MEMANTINE. [Suspect]
     Active Substance: MEMANTINE
     Indication: DEMENTIA ALZHEIMER^S TYPE
     Dosage: 10 MG
     Route: 065
     Dates: start: 20161220, end: 20200102
  7. POLPRIL [Concomitant]
     Active Substance: RAMIPRIL
     Indication: ESSENTIAL HYPERTENSION
     Dosage: 5MG
  8. INDIX SR [Concomitant]
     Active Substance: INDAPAMIDE
     Indication: ESSENTIAL HYPERTENSION
     Dosage: 1.5 MG

REACTIONS (2)
  - Altered state of consciousness [Recovering/Resolving]
  - Liver injury [Recovering/Resolving]

NARRATIVE: CASE EVENT DATE: 20200102
